FAERS Safety Report 8221972-3 (Version None)
Quarter: 2012Q1

REPORT INFORMATION
  Report Type: 
  Country: None (occurrence: None)
  Receive Date: 20120320
  Receipt Date: 20120312
  Transmission Date: 20120608
  Serious: Yes (Other)
  Sender: FDA-Public Use
  Company Number: US-BAYER-2012-025022

PATIENT
  Age: 61 Year
  Sex: Female
  Weight: 90.703 kg

DRUGS (9)
  1. METHADONE HCL [Concomitant]
     Indication: FIBROMYALGIA
     Dosage: 4DF AT 20MG DAILY AT NIGHT
     Route: 048
     Dates: start: 20030101
  2. PROZAC [Concomitant]
     Indication: DEPRESSION
     Dosage: 20 MG, UNK
  3. METHADONE HCL [Concomitant]
     Dosage: 4 DF AT 10MG DAILY
  4. PROZAC [Concomitant]
     Indication: BIPOLAR DISORDER
  5. OXYCODONE HCL [Suspect]
     Indication: FIBROMYALGIA
  6. UNSPECIFIED MEDICATIONS [Suspect]
     Indication: FIBROMYALGIA
  7. ALEVE (CAPLET) [Suspect]
  8. NEURONTIN [Suspect]
     Indication: FIBROMYALGIA
  9. LISINOPRIL AND HYDROCHLOROTHIAZIDE [Concomitant]
     Indication: BLOOD PRESSURE ABNORMAL
     Dosage: 20/12.5 DAILY
     Route: 048

REACTIONS (5)
  - ABDOMINAL DISCOMFORT [None]
  - ARTHRALGIA [None]
  - BIPOLAR DISORDER [None]
  - POLYP [None]
  - MALAISE [None]
